FAERS Safety Report 11692645 (Version 1)
Quarter: 2015Q4

REPORT INFORMATION
  Report Type: Report from Study
  Country: BR (occurrence: BR)
  Receive Date: 20151103
  Receipt Date: 20151103
  Transmission Date: 20160304
  Serious: Yes (Hospitalization)
  Sender: FDA-Public Use
  Company Number: PHHY2015BR141265

PATIENT
  Sex: Female
  Weight: 93 kg

DRUGS (1)
  1. DIOVAN HCT [Suspect]
     Active Substance: HYDROCHLOROTHIAZIDE\VALSARTAN
     Indication: HYPERTENSION
     Dosage: VALSARTAN (160 MG), HYDROCHLOROTHIAZIDE (12.5 MG), QD
     Route: 048

REACTIONS (1)
  - Myocardial infarction [Not Recovered/Not Resolved]
